FAERS Safety Report 9558121 (Version 1)
Quarter: 2013Q3

REPORT INFORMATION
  Report Type: Spontaneous
  Country: US (occurrence: None)
  Receive Date: 20130724
  Receipt Date: 20130724
  Transmission Date: 20140515
  Serious: No
  Sender: FDA-Public Use
  Company Number: PHEH2013US007363

PATIENT
  Sex: Female
  Weight: 51.4 kg

DRUGS (1)
  1. GILENYA [Suspect]
     Indication: MULTIPLE SCLEROSIS
     Route: 048

REACTIONS (4)
  - Musculoskeletal pain [None]
  - Hypoaesthesia [None]
  - Pain in extremity [None]
  - Dysgraphia [None]
